FAERS Safety Report 15122802 (Version 1)
Quarter: 2018Q3

REPORT INFORMATION
  Report Type: Report from Study
  Country: IL (occurrence: IL)
  Receive Date: 20180709
  Receipt Date: 20180709
  Transmission Date: 20181010
  Serious: Yes (Other)
  Sender: FDA-Public Use
  Company Number: IL-SA-2017SA106634

PATIENT
  Sex: Female
  Weight: 60 kg

DRUGS (1)
  1. TERIFLUNOMIDE [Suspect]
     Active Substance: TERIFLUNOMIDE
     Indication: MULTIPLE SCLEROSIS
     Dosage: 14 MG,UNK
     Route: 048
     Dates: start: 20160825, end: 20161127

REACTIONS (5)
  - Thrombocytopenia [Unknown]
  - Leukopenia [Unknown]
  - Alopecia [Unknown]
  - Blood test abnormal [Unknown]
  - Neutropenia [Unknown]

NARRATIVE: CASE EVENT DATE: 20160825
